FAERS Safety Report 22632341 (Version 1)
Quarter: 2023Q2

REPORT INFORMATION
  Report Type: Spontaneous
  Country: US (occurrence: US)
  Receive Date: 20230623
  Receipt Date: 20230623
  Transmission Date: 20230722
  Serious: Yes (Death)
  Sender: FDA-Public Use
  Company Number: US-002147023-NVSC2023US141602

PATIENT

DRUGS (4)
  1. CARBOPLATIN [Suspect]
     Active Substance: CARBOPLATIN
     Indication: Non-small cell lung cancer stage IV
     Dosage: AUC 5 DAY 1 (EVERY 3 WEEKS FOR UP TO 4 CYCLES)
     Route: 042
  2. PEMETREXED [Suspect]
     Active Substance: PEMETREXED
     Indication: Non-small cell lung cancer stage IV
     Dosage: 500 MG/M2, CYCLIC DAY 1 (EVERY 3 WEEKS FOR UP TO 4 CYCLES)
     Route: 042
  3. BEVACIZUMAB [Suspect]
     Active Substance: BEVACIZUMAB
     Indication: Non-small cell lung cancer stage IV
     Dosage: 15 MG/KG, CYCLIC DAY 1 (EVERY 3 WEEKS FOR UP TO 4 CYCLES)
     Route: 042
  4. ATEZOLIZUMAB [Suspect]
     Active Substance: ATEZOLIZUMAB
     Indication: Non-small cell lung cancer stage IV
     Dosage: 1200 MG, CYCLIC DAY 1 (EVERY 3 WEEKS FOR UP TO 4 CYCLES)
     Route: 042

REACTIONS (1)
  - Large intestine perforation [Fatal]
